FAERS Safety Report 15499136 (Version 1)
Quarter: 2018Q4

REPORT INFORMATION
  Report Type: Spontaneous
  Country: FR (occurrence: FR)
  Receive Date: 20181015
  Receipt Date: 20181015
  Transmission Date: 20190205
  Serious: Yes (Hospitalization)
  Sender: FDA-Public Use
  Company Number: FR-UCBSA-2018044727

PATIENT
  Age: 76 Year
  Sex: Male
  Weight: 81.6 kg

DRUGS (3)
  1. PREVISCAN (FLUINDIONE) [Suspect]
     Active Substance: FLUINDIONE
     Indication: CEREBRAL VENOUS THROMBOSIS
     Dosage: 0.25 DF ONE DAY
     Route: 048
     Dates: start: 20180705, end: 20180907
  2. VIMPAT [Suspect]
     Active Substance: LACOSAMIDE
     Indication: CEREBRAL VENOUS THROMBOSIS
     Dosage: UNK
     Route: 048
  3. VIMPAT [Suspect]
     Active Substance: LACOSAMIDE
     Indication: OFF LABEL USE

REACTIONS (2)
  - Acute kidney injury [Not Recovered/Not Resolved]
  - Off label use [Unknown]

NARRATIVE: CASE EVENT DATE: 20180831
